FAERS Safety Report 17172383 (Version 1)
Quarter: 2019Q4

REPORT INFORMATION
  Report Type: Spontaneous
  Country: FR (occurrence: FR)
  Receive Date: 20191218
  Receipt Date: 20191218
  Transmission Date: 20200122
  Serious: Yes (Hospitalization)
  Sender: FDA-Public Use
  Company Number: FR-PFIZER INC-2019540597

PATIENT
  Age: 47 Year
  Sex: Male
  Weight: 116 kg

DRUGS (9)
  1. FLUCONAZOLE. [Suspect]
     Active Substance: FLUCONAZOLE
     Indication: INTERVERTEBRAL DISCITIS
     Dosage: 800 MG, 1X/DAY
     Route: 041
     Dates: start: 20190926, end: 20191103
  2. LINEZOLID. [Suspect]
     Active Substance: LINEZOLID
     Indication: INTERVERTEBRAL DISCITIS
     Dosage: 1200 MG, 1X/DAY
     Dates: start: 20190930, end: 20191103
  3. BACTRIM [Suspect]
     Active Substance: SULFAMETHOXAZOLE\TRIMETHOPRIM
     Indication: INTERVERTEBRAL DISCITIS
     Dosage: 4 DF, UNK
     Route: 048
     Dates: start: 20190830, end: 20190930
  4. SUBUTEX [Concomitant]
     Active Substance: BUPRENORPHINE HYDROCHLORIDE
     Indication: DRUG DEPENDENCE
     Dosage: 8 MG, 1X/DAY
     Route: 048
  5. SERESTA [Concomitant]
     Active Substance: OXAZEPAM
     Dosage: UNK
  6. OFLOXACINE [Suspect]
     Active Substance: OFLOXACIN
     Indication: INTERVERTEBRAL DISCITIS
     Dosage: 600 MG, 1X/DAY
     Route: 048
     Dates: start: 20190805, end: 20191103
  7. CEFOTAXIME [Suspect]
     Active Substance: CEFOTAXIME SODIUM
     Indication: INTERVERTEBRAL DISCITIS
     Dosage: UNK
     Route: 041
     Dates: start: 20190805, end: 20190830
  8. MICAFUNGINE [Suspect]
     Active Substance: MICAFUNGIN
     Indication: INTERVERTEBRAL DISCITIS
     Dosage: 150 MG, UNK
     Route: 041
     Dates: start: 20190808, end: 20190926
  9. KARDEGIC [Concomitant]
     Active Substance: ASPIRIN DL-LYSINE
     Dosage: UNK

REACTIONS (3)
  - Product use in unapproved indication [Unknown]
  - Off label use [Unknown]
  - Acute kidney injury [Recovering/Resolving]

NARRATIVE: CASE EVENT DATE: 20190926
